FAERS Safety Report 11490664 (Version 2)
Quarter: 2016Q4

REPORT INFORMATION
  Report Type: Spontaneous
  Country: US (occurrence: US)
  Receive Date: 20150910
  Receipt Date: 20161028
  Transmission Date: 20170206
  Serious: Yes (Other)
  Sender: FDA-Public Use
  Company Number: US-ELI_LILLY_AND_COMPANY-US201509001425

PATIENT
  Sex: Male

DRUGS (5)
  1. CYMBALTA [Suspect]
     Active Substance: DULOXETINE HYDROCHLORIDE
     Indication: PAIN
     Dosage: 60 MG, QD
     Route: 065
  2. CYMBALTA [Suspect]
     Active Substance: DULOXETINE HYDROCHLORIDE
     Indication: DEPRESSION
  3. KEPPRA [Concomitant]
     Active Substance: LEVETIRACETAM
     Dosage: 3 DF, PRN
  4. KEPPRA [Concomitant]
     Active Substance: LEVETIRACETAM
     Dosage: 4 DF, PRN
     Route: 065
  5. CYMBALTA [Suspect]
     Active Substance: DULOXETINE HYDROCHLORIDE
     Indication: POST-TRAUMATIC STRESS DISORDER

REACTIONS (10)
  - Photopsia [Unknown]
  - Tinnitus [Unknown]
  - Amnesia [Unknown]
  - Mood swings [Unknown]
  - Nightmare [Unknown]
  - Anxiety [Unknown]
  - Irritability [Unknown]
  - Drug withdrawal syndrome [Unknown]
  - Seizure [Unknown]
  - Sleep disorder [Unknown]
